FAERS Safety Report 25643100 (Version 1)
Quarter: 2025Q3

REPORT INFORMATION
  Report Type: Spontaneous
  Country: EU (occurrence: EU)
  Receive Date: 20250805
  Receipt Date: 20250805
  Transmission Date: 20251020
  Serious: Yes (Hospitalization, Other)
  Sender: GLAXOSMITHKLINE
  Company Number: None

PATIENT
  Age: 19 Year
  Sex: Male
  Weight: 49 kg

DRUGS (1)
  1. LAMICTAL [Suspect]
     Active Substance: LAMOTRIGINE
     Indication: Product used for unknown indication

REACTIONS (2)
  - Epilepsy [Recovering/Resolving]
  - Product dose omission in error [Unknown]

NARRATIVE: CASE EVENT DATE: 20250328
